FAERS Safety Report 6280200-9 (Version None)
Quarter: 2009Q3

REPORT INFORMATION
  Report Type: 
  Country: None (occurrence: None)
  Receive Date: 20090723
  Receipt Date: 20090716
  Transmission Date: 20100115
  Serious: Yes (Death)
  Sender: FDA-Public Use
  Company Number: US-GILEAD-2009-0022167

PATIENT
  Sex: Female

DRUGS (1)
  1. LETAIRIS [Suspect]
     Dates: start: 20080305, end: 20090513

REACTIONS (2)
  - CHRONIC OBSTRUCTIVE PULMONARY DISEASE [None]
  - STAPHYLOCOCCAL INFECTION [None]
